FAERS Safety Report 25884286 (Version 1)
Quarter: 2025Q4

REPORT INFORMATION
  Report Type: Spontaneous
  Country: US (occurrence: None)
  Receive Date: 20251003
  Receipt Date: 20251003
  Transmission Date: 20260117
  Serious: Yes (Other)
  Sender: FDA-CTU
  Company Number: None

PATIENT
  Age: 59 Year
  Sex: Female
  Weight: 69.75 kg

DRUGS (9)
  1. PANTOPRAZOLE SODIUM [Suspect]
     Active Substance: PANTOPRAZOLE SODIUM
     Indication: Gastrooesophageal reflux disease
     Dosage: OTHER QUANTITY : 1 TABLET(S);?
     Route: 048
  2. Cevemeline 30mg [Concomitant]
  3. IVIg Gammagard 85g over 3 non-consecutive days in a week every 6 weeks [Concomitant]
  4. omeprazole 20mg during IVIg treatments [Concomitant]
  5. EPIPEN [Concomitant]
     Active Substance: EPINEPHRINE
  6. VITAMINS [Concomitant]
     Active Substance: VITAMINS
  7. Nutrafol [Concomitant]
  8. Stone breaker by Herb Pharm [Concomitant]
  9. ADVIL [Concomitant]
     Active Substance: IBUPROFEN

REACTIONS (5)
  - Oral pain [None]
  - Oropharyngeal erythema [None]
  - Throat irritation [None]
  - Stomatitis [None]
  - Therapy cessation [None]

NARRATIVE: CASE EVENT DATE: 20251002
